FAERS Safety Report 4301442-5 (Version None)
Quarter: 2004Q1

REPORT INFORMATION
  Report Type: 
  Country: None (occurrence: None)
  Receive Date: 20040219
  Receipt Date: 20040203
  Transmission Date: 20041129
  Serious: Yes (Hospitalization)
  Sender: FDA-Public Use
  Company Number: 701606

PATIENT
  Age: 68 Year
  Sex: Male

DRUGS (1)
  1. AMEVIVE [Suspect]
     Indication: PSORIASIS
     Dosage: 15 MG QW IM
     Dates: start: 20040109

REACTIONS (4)
  - FEELING ABNORMAL [None]
  - PAIN [None]
  - PYREXIA [None]
  - RASH PUSTULAR [None]
